FAERS Safety Report 19816956 (Version 1)
Quarter: 2021Q3

REPORT INFORMATION
  Report Type: Other
  Country: CN (occurrence: CN)
  Receive Date: 20210910
  Receipt Date: 20210910
  Transmission Date: 20211014
  Serious: Yes (Life-Threatening, Other)
  Sender: FDA-Public Use
  Company Number: CN-GE HEALTHCARE LIFE SCIENCES-2021CSU004444

PATIENT

DRUGS (2)
  1. OMNISCAN [Suspect]
     Active Substance: GADODIAMIDE
     Indication: MAGNETIC RESONANCE IMAGING ABDOMINAL
     Dosage: 15 ML, SINGLE
     Route: 042
     Dates: start: 20210829, end: 20210829
  2. OMNISCAN [Suspect]
     Active Substance: GADODIAMIDE
     Indication: PRODUCT USED FOR UNKNOWN INDICATION

REACTIONS (10)
  - Flushing [Recovering/Resolving]
  - Hypoaesthesia oral [Recovered/Resolved]
  - Palpitations [Recovering/Resolving]
  - Chills [Recovered/Resolved]
  - Tachypnoea [Recovered/Resolved]
  - Asthenia [Recovering/Resolving]
  - Pruritus [Recovered/Resolved]
  - Shock [Recovering/Resolving]
  - Vision blurred [Recovered/Resolved]
  - Peripheral coldness [Recovering/Resolving]

NARRATIVE: CASE EVENT DATE: 20210829
